FAERS Safety Report 7358054-9 (Version None)
Quarter: 2011Q1

REPORT INFORMATION
  Report Type: 
  Country: None (occurrence: None)
  Receive Date: 20110317
  Receipt Date: 20110303
  Transmission Date: 20110831
  Serious: Yes (Hospitalization)
  Sender: FDA-Public Use
  Company Number: PHHY2011NL18146

PATIENT
  Sex: Male

DRUGS (3)
  1. ZOMETA [Suspect]
     Dosage: 4 MG, PER 5 ML EVERY 28 DAYS
     Route: 042
     Dates: start: 20110110
  2. ZOMETA [Suspect]
     Indication: PROSTATE CANCER METASTATIC
     Dosage: 4 MG, PER 5 ML EVERY 28 DAYS
     Route: 042
     Dates: start: 20101213
  3. ZOMETA [Suspect]
     Dosage: 4 MG, PER 5 ML EVERY 28 DAYS
     Route: 042
     Dates: start: 20110208

REACTIONS (3)
  - CYSTITIS [None]
  - CONFUSIONAL STATE [None]
  - DELIRIUM [None]
